FAERS Safety Report 13501748 (Version 1)
Quarter: 2017Q2

REPORT INFORMATION
  Report Type: Spontaneous
  Country: US (occurrence: US)
  Receive Date: 20170502
  Receipt Date: 20170502
  Transmission Date: 20170830
  Serious: Yes (Other)
  Sender: FDA-Public Use
  Company Number: US-AUROBINDO-AUR-APL-2017-33193

PATIENT
  Age: 87 Year
  Sex: Female

DRUGS (2)
  1. PREDNISONE 10 MG [Suspect]
     Active Substance: PREDNISONE
     Indication: PULMONARY FIBROSIS
     Dosage: 10 MG, DAILY
     Route: 065
  2. ACTONEL [Interacting]
     Active Substance: RISEDRONATE SODIUM
     Indication: OSTEOPOROSIS
     Dosage: UNK
     Route: 048

REACTIONS (2)
  - Drug interaction [Unknown]
  - Osteonecrosis of jaw [Unknown]
